FAERS Safety Report 15469754 (Version 1)
Quarter: 2018Q4

REPORT INFORMATION
  Report Type: Spontaneous
  Country: IT (occurrence: IT)
  Receive Date: 20181005
  Receipt Date: 20181005
  Transmission Date: 20190205
  Serious: Yes (Death)
  Sender: FDA-Public Use
  Company Number: IT-PFIZER INC-2018400759

PATIENT
  Age: 63 Year
  Sex: Male
  Weight: 87 kg

DRUGS (1)
  1. HEPARIN SODIUM. [Suspect]
     Active Substance: HEPARIN SODIUM
     Indication: ANTICOAGULANT THERAPY
     Dosage: 22.5 KIU, 1X/DAY
     Route: 042

REACTIONS (3)
  - Cerebral haemorrhage [Fatal]
  - Spontaneous haemorrhage [Fatal]
  - Haematoma [Fatal]

NARRATIVE: CASE EVENT DATE: 20180306
